FAERS Safety Report 14571488 (Version 1)
Quarter: 2018Q1

REPORT INFORMATION
  Report Type: Spontaneous
  Country: US (occurrence: US)
  Receive Date: 20180226
  Receipt Date: 20180226
  Transmission Date: 20180509
  Serious: Yes (Other)
  Sender: FDA-Public Use
  Company Number: US-LEXICON PHARMACEUTICALS, INC-18-1606-00187

PATIENT
  Sex: Female

DRUGS (5)
  1. SANDOSTATIN [Concomitant]
     Active Substance: OCTREOTIDE ACETATE
  2. HYDROCODONE [Concomitant]
     Active Substance: HYDROCODONE
  3. TELOTRISTAT ETHYL [Suspect]
     Active Substance: TELOTRISTAT ETHYL
     Indication: CARCINOID SYNDROME
     Route: 048
     Dates: start: 20170815
  4. CREON [Concomitant]
     Active Substance: PANCRELIPASE AMYLASE\PANCRELIPASE LIPASE\PANCRELIPASE PROTEASE
  5. FENTANYL TRANSDERMAL SYSTEM [Concomitant]
     Active Substance: FENTANYL

REACTIONS (25)
  - Vomiting [Unknown]
  - Feeling abnormal [Unknown]
  - Feeling of despair [Unknown]
  - Emotional distress [Unknown]
  - Suicidal ideation [Unknown]
  - Anxiety [Unknown]
  - Asthenia [Unknown]
  - Blood chromogranin A increased [Unknown]
  - Abdominal pain [Unknown]
  - Pyrexia [Unknown]
  - Red blood cell count decreased [Unknown]
  - Abdominal tenderness [Unknown]
  - Nausea [Unknown]
  - Palpitations [Unknown]
  - Fatigue [Unknown]
  - Weight decreased [Unknown]
  - Intentional product misuse [Unknown]
  - Insomnia [Unknown]
  - Myalgia [Unknown]
  - Liver function test increased [Unknown]
  - Viral infection [Unknown]
  - Muscle spasms [Unknown]
  - Haemorrhoids [Unknown]
  - Stress [Unknown]
  - Mental impairment [Unknown]
